FAERS Safety Report 15916135 (Version 5)
Quarter: 2020Q1

REPORT INFORMATION
  Report Type: Report from Study
  Country: GB (occurrence: GB)
  Receive Date: 20190204
  Receipt Date: 20200328
  Transmission Date: 20200409
  Serious: Yes (Hospitalization)
  Sender: FDA-Public Use
  Company Number: PHHY2019GB024068

PATIENT
  Age: 60 Year
  Sex: Female
  Weight: 75 kg

DRUGS (39)
  1. RANITIDINE. [Concomitant]
     Active Substance: RANITIDINE
     Dosage: 150 MG, BID
     Route: 065
     Dates: start: 20200220
  2. OMEPRAZOLE. [Concomitant]
     Active Substance: OMEPRAZOLE
     Indication: PRODUCT USED FOR UNKNOWN INDICATION
     Dosage: 40 MG, BID
     Route: 065
     Dates: start: 20140422
  3. ATORVASTATIN [Concomitant]
     Active Substance: ATORVASTATIN
     Indication: HYPERTENSION
     Dosage: 80 MG ON
     Route: 065
     Dates: start: 20150625
  4. NORTRIPTYLINE [Concomitant]
     Active Substance: NORTRIPTYLINE
     Dosage: 10 MG ON
     Route: 065
     Dates: start: 20200220
  5. PHYTOMENADIONE [Concomitant]
     Active Substance: PHYTONADIONE
     Indication: PRODUCT USED FOR UNKNOWN INDICATION
     Dosage: 10 MG, TID
     Route: 065
     Dates: start: 20200218
  6. PARACETAMOL [Concomitant]
     Active Substance: ACETAMINOPHEN
     Indication: PSORIATIC ARTHROPATHY
     Dosage: 100 MG, PRN
     Route: 065
     Dates: start: 2014
  7. LEFLUNOMIDE. [Concomitant]
     Active Substance: LEFLUNOMIDE
     Indication: PSORIATIC ARTHROPATHY
     Dosage: 20 MG, QD
     Route: 065
     Dates: end: 20190129
  8. RANITIDINE. [Concomitant]
     Active Substance: RANITIDINE
     Indication: PRODUCT USED FOR UNKNOWN INDICATION
     Dosage: 150 MG, BID
     Route: 065
     Dates: start: 20200219
  9. OMEPRAZOLE. [Concomitant]
     Active Substance: OMEPRAZOLE
     Dosage: 40 MG, BID
     Route: 065
     Dates: start: 20200221
  10. NORTRIPTYLINE [Concomitant]
     Active Substance: NORTRIPTYLINE
     Indication: PSORIATIC ARTHROPATHY
     Dosage: 10 MG ON
     Route: 065
     Dates: start: 2013
  11. FOLIC ACID. [Concomitant]
     Active Substance: FOLIC ACID
     Dosage: 5 MG, BID
     Route: 065
     Dates: start: 20200228
  12. PHYTOMENADIONE [Concomitant]
     Active Substance: PHYTONADIONE
     Dosage: 10 MG, Q2W
     Route: 065
     Dates: start: 20200314
  13. SULFASALAZINE. [Concomitant]
     Active Substance: SULFASALAZINE
     Dosage: 1500 MG
     Route: 065
     Dates: start: 20200221, end: 20200226
  14. GABAPENTIN. [Concomitant]
     Active Substance: GABAPENTIN
     Dosage: 300 MG, TID
     Route: 065
     Dates: start: 20200221
  15. BACLOFEN. [Concomitant]
     Active Substance: BACLOFEN
     Indication: PSORIATIC ARTHROPATHY
     Dosage: 10 MG, TID
     Route: 065
     Dates: start: 20200221
  16. ZOPICLONE [Concomitant]
     Active Substance: ZOPICLONE
     Dosage: 3.75 MG ON
     Route: 065
     Dates: start: 20200227
  17. OMEPRAZOLE. [Concomitant]
     Active Substance: OMEPRAZOLE
     Dosage: 40 MG, BID
     Route: 065
     Dates: start: 20200228
  18. NORTRIPTYLINE [Concomitant]
     Active Substance: NORTRIPTYLINE
     Dosage: 10 MG ON
     Route: 065
     Dates: start: 20200227
  19. FOLIC ACID. [Concomitant]
     Active Substance: FOLIC ACID
     Indication: PRODUCT USED FOR UNKNOWN INDICATION
     Dosage: 5 MG, BID
     Route: 065
     Dates: start: 20200219
  20. BACLOFEN. [Concomitant]
     Active Substance: BACLOFEN
     Indication: MUSCLE SPASMS
     Dosage: 10 MG, TID
     Route: 065
     Dates: start: 20171108
  21. BACLOFEN. [Concomitant]
     Active Substance: BACLOFEN
     Dosage: 10 MG, TID
     Route: 065
     Dates: start: 20200228
  22. ATORVASTATIN [Concomitant]
     Active Substance: ATORVASTATIN
     Dosage: 80 MG ON
     Route: 065
     Dates: start: 20200219
  23. GABAPENTIN. [Concomitant]
     Active Substance: GABAPENTIN
     Dosage: 300 MG, TID
     Route: 065
     Dates: start: 20200228
  24. FOLIC ACID. [Concomitant]
     Active Substance: FOLIC ACID
     Dosage: 5 MG, BID
     Route: 065
     Dates: start: 20200221
  25. CANDESARTAN CILEXETIL. [Concomitant]
     Active Substance: CANDESARTAN CILEXETIL
     Indication: MYOCARDIAL ISCHAEMIA
     Dosage: 4 MG, QD
     Route: 065
     Dates: start: 20160718, end: 20200217
  26. FORTISIP [Concomitant]
     Active Substance: CARBOHYDRATES\FATTY ACIDS\MINERALS\PROTEIN\VITAMINS
     Indication: PRODUCT USED FOR UNKNOWN INDICATION
     Dosage: 200 ML
     Route: 065
     Dates: start: 20200228
  27. SULFASALAZINE. [Concomitant]
     Active Substance: SULFASALAZINE
     Dosage: 1500 MG, QD
     Route: 065
     Dates: start: 20060803, end: 20200217
  28. RANITIDINE. [Concomitant]
     Active Substance: RANITIDINE
     Dosage: 150 MG, BID
     Route: 065
     Dates: start: 20200227, end: 20200312
  29. ASPIRIN. [Concomitant]
     Active Substance: ASPIRIN
     Indication: MYOCARDIAL ISCHAEMIA
     Dosage: 75 MG OM
     Route: 065
     Dates: start: 20130315, end: 20200226
  30. PHYTOMENADIONE [Concomitant]
     Active Substance: PHYTONADIONE
     Dosage: 10 MG, QD
     Route: 065
     Dates: start: 20200227
  31. ZOPICLONE [Concomitant]
     Active Substance: ZOPICLONE
     Dosage: 3.75 MG ON
     Route: 065
     Dates: start: 20200220
  32. COSENTYX [Suspect]
     Active Substance: SECUKINUMAB
     Dosage: 300 MG, QMO
     Route: 058
     Dates: start: 20200316
  33. SULFASALAZINE. [Concomitant]
     Active Substance: SULFASALAZINE
     Indication: PSORIATIC ARTHROPATHY
     Dosage: 2 G, QD
     Route: 065
     Dates: end: 20200216
  34. ATORVASTATIN [Concomitant]
     Active Substance: ATORVASTATIN
     Dosage: 80 MG ON
     Route: 065
     Dates: start: 20200227
  35. GABAPENTIN. [Concomitant]
     Active Substance: GABAPENTIN
     Indication: PSORIATIC ARTHROPATHY
     Dosage: 300 MG, TID
     Route: 065
     Dates: start: 20191111
  36. PHYTOMENADIONE [Concomitant]
     Active Substance: PHYTONADIONE
     Dosage: 10 MG, TID
     Route: 065
     Dates: start: 20200221
  37. ZERODERM [Concomitant]
     Indication: PRODUCT USED FOR UNKNOWN INDICATION
     Dosage: 1 DF, BID (1 APPLICATION)
     Route: 065
     Dates: start: 20200228
  38. COSENTYX [Suspect]
     Active Substance: SECUKINUMAB
     Indication: PSORIATIC ARTHROPATHY
     Dosage: 300 MG, QMO
     Route: 058
     Dates: start: 201705, end: 20200115
  39. ZOPICLONE [Concomitant]
     Active Substance: ZOPICLONE
     Indication: PRODUCT USED FOR UNKNOWN INDICATION
     Dosage: 3.75 MG ON
     Route: 065
     Dates: start: 20140422

REACTIONS (14)
  - Anaemia [Recovered/Resolved with Sequelae]
  - Cholecystitis [Recovered/Resolved]
  - Ecchymosis [Not Recovered/Not Resolved]
  - Acute kidney injury [Recovered/Resolved with Sequelae]
  - Internal haemorrhage [Recovered/Resolved with Sequelae]
  - Fatigue [Recovered/Resolved with Sequelae]
  - Abdominal pain upper [Recovered/Resolved]
  - Anaemia [Recovered/Resolved with Sequelae]
  - Biliary dilatation [Recovered/Resolved]
  - Faeces discoloured [Not Recovered/Not Resolved]
  - Haemoglobin decreased [Recovered/Resolved with Sequelae]
  - Malaise [Not Recovered/Not Resolved]
  - Rash maculo-papular [Not Recovered/Not Resolved]
  - Dyspnoea [Recovered/Resolved with Sequelae]

NARRATIVE: CASE EVENT DATE: 20190127
